FAERS Safety Report 17096636 (Version 1)
Quarter: 2019Q4

REPORT INFORMATION
  Report Type: Spontaneous
  Country: CZ (occurrence: CZ)
  Receive Date: 20191202
  Receipt Date: 20191202
  Transmission Date: 20200122
  Serious: Yes (Hospitalization)
  Sender: FDA-Public Use
  Company Number: CZ-CIPLA LTD.-2019CZ00104

PATIENT

DRUGS (5)
  1. DEXAMETHASONE. [Suspect]
     Active Substance: DEXAMETHASONE
     Indication: PREMEDICATION
     Dosage: 20 MILLIGRAM, QD
     Route: 065
     Dates: start: 20160120, end: 20160120
  2. CETIRIZINE [Suspect]
     Active Substance: CETIRIZINE HYDROCHLORIDE
     Indication: PREMEDICATION
     Dosage: 10 MILLIGRAM, QD, COATED TABLET
     Route: 065
     Dates: start: 20160120, end: 20160120
  3. ALLOPURINOL. [Suspect]
     Active Substance: ALLOPURINOL
     Indication: HYPERURICAEMIA
     Dosage: 1 DOSAGE FORM, (1 UNIT), QD
     Route: 065
     Dates: start: 20160120, end: 20160120
  4. PARACETAMOL [Suspect]
     Active Substance: ACETAMINOPHEN
     Indication: PREMEDICATION
     Dosage: 1000 MILLIGRAM, QD
     Route: 065
     Dates: start: 20160120, end: 20160120
  5. OBINUTUZUMAB. [Suspect]
     Active Substance: OBINUTUZUMAB
     Indication: CHRONIC LYMPHOCYTIC LEUKAEMIA
     Dosage: 100 MILLIGRAM, UNK
     Route: 065
     Dates: start: 20160120, end: 20160120

REACTIONS (7)
  - Product use in unapproved indication [Unknown]
  - Pharyngeal swelling [Recovered/Resolved]
  - C-reactive protein increased [Recovered/Resolved]
  - Sinusitis [Recovered/Resolved]
  - Erythema [Recovered/Resolved]
  - Neck pain [Recovered/Resolved]
  - Off label use [Unknown]

NARRATIVE: CASE EVENT DATE: 20160120
